FAERS Safety Report 16746428 (Version 3)
Quarter: 2019Q3

REPORT INFORMATION
  Report Type: Spontaneous
  Country: KR (occurrence: KR)
  Receive Date: 20190827
  Receipt Date: 20190930
  Transmission Date: 20191005
  Serious: No
  Sender: FDA-Public Use
  Company Number: PHHY2019KR196650

PATIENT
  Age: 75 Year
  Sex: Male

DRUGS (5)
  1. OCUFLOX [Concomitant]
     Active Substance: OFLOXACIN
     Indication: INFECTIVE KERATITIS
     Dosage: UNK (INSTILL INTO EYE), BID
     Route: 065
  2. VIGAMOX [Suspect]
     Active Substance: MOXIFLOXACIN HYDROCHLORIDE
     Indication: INFECTIVE KERATITIS
     Dosage: UNK, (QH))
     Route: 065
  3. VIGAMOX [Suspect]
     Active Substance: MOXIFLOXACIN HYDROCHLORIDE
     Dosage: UNK (Q2H)
     Route: 065
  4. CEFTAZIDIME. [Concomitant]
     Active Substance: CEFTAZIDIME
     Dosage: UNK UNK, Q2H (INSTILL INTO EYE, EVERY 2 HOUR)(Q2H)
     Route: 065
  5. CEFTAZIDIME. [Concomitant]
     Active Substance: CEFTAZIDIME
     Indication: INFECTIVE KERATITIS
     Dosage: UNK (INSTILL INTO EYE, EVERY 1 HOUR) (QH)
     Route: 065

REACTIONS (1)
  - Drug ineffective [Unknown]
